FAERS Safety Report 12067705 (Version 3)
Quarter: 2016Q1

REPORT INFORMATION
  Report Type: Spontaneous
  Country: JP (occurrence: JP)
  Receive Date: 20160211
  Receipt Date: 20160322
  Transmission Date: 20160526
  Serious: Yes (Hospitalization)
  Sender: FDA-Public Use
  Company Number: JP-ASTRAZENECA-2016SE13289

PATIENT
  Age: 30588 Day
  Sex: Female
  Weight: 38 kg

DRUGS (4)
  1. SEPAMIT-R [Concomitant]
     Active Substance: NIFEDIPINE
     Indication: HYPERTENSION
     Route: 048
  2. IRESSA [Suspect]
     Active Substance: GEFITINIB
     Indication: LUNG ADENOCARCINOMA STAGE III
     Route: 048
     Dates: start: 20160131, end: 201602
  3. IRESSA [Suspect]
     Active Substance: GEFITINIB
     Indication: LUNG ADENOCARCINOMA STAGE III
     Route: 048
     Dates: start: 20160210
  4. ZOPICLONE [Concomitant]
     Active Substance: ZOPICLONE
     Indication: INSOMNIA
     Route: 048
     Dates: start: 20160131, end: 20160219

REACTIONS (1)
  - Colitis ischaemic [Recovering/Resolving]

NARRATIVE: CASE EVENT DATE: 20160202
